FAERS Safety Report 5456147-4 (Version None)
Quarter: 2007Q3

REPORT INFORMATION
  Report Type: 
  Country: None (occurrence: None)
  Receive Date: 20070918
  Receipt Date: 20070330
  Transmission Date: 20080115
  Serious: Yes (Hospitalization)
  Sender: FDA-Public Use
  Company Number: US-ASTRAZENECA-2006UW23364

PATIENT
  Sex: Female
  Weight: 93.6 kg

DRUGS (7)
  1. SEROQUEL [Suspect]
     Indication: SLEEP DISORDER
     Route: 048
     Dates: start: 20000101
  2. SEROQUEL [Suspect]
     Indication: MENTAL DISORDER
     Route: 048
     Dates: start: 20000101
  3. HALDOL [Concomitant]
     Dates: start: 19800101, end: 20020101
  4. NAVANE [Concomitant]
  5. RISPERDAL [Concomitant]
     Route: 048
     Dates: start: 19950101
  6. THORAZINE [Concomitant]
     Dates: start: 19800101
  7. ZYPREXA [Concomitant]
     Dates: start: 20020501, end: 20060801

REACTIONS (2)
  - PSYCHOTIC DISORDER [None]
  - TYPE 2 DIABETES MELLITUS [None]
